FAERS Safety Report 7186139-9 (Version None)
Quarter: 2010Q4

REPORT INFORMATION
  Report Type: 
  Country: None (occurrence: None)
  Receive Date: 20101222
  Receipt Date: 20101217
  Transmission Date: 20110411
  Serious: Yes (Death, Life-Threatening)
  Sender: FDA-Public Use
  Company Number: JP-ABBOTT-10P-087-0692471-00

PATIENT
  Sex: Male
  Weight: 68.7 kg

DRUGS (3)
  1. SEVOFLURANE [Suspect]
     Indication: MAINTENANCE OF ANAESTHESIA
     Dosage: 8 % FOR ABOUT 30 SECONDS
     Route: 055
     Dates: start: 20090728, end: 20090728
  2. PROPOFOL [Concomitant]
     Indication: ANAESTHESIA
     Dosage: 3 MCG/ML FOR INDUCTION
     Route: 042
     Dates: start: 20090728, end: 20090728
  3. PROPOFOL [Concomitant]
     Dosage: 2 MCG/ML FOR MAINTENANCE
     Route: 042
     Dates: start: 20090728, end: 20090728

REACTIONS (2)
  - BILE DUCT CANCER [None]
  - HYPERTHERMIA MALIGNANT [None]
